FAERS Safety Report 5290533-0 (Version None)
Quarter: 2007Q2

REPORT INFORMATION
  Report Type: 
  Country: None (occurrence: None)
  Receive Date: 20070409
  Receipt Date: 20070330
  Transmission Date: 20071010
  Serious: Yes (Other)
  Sender: FDA-Public Use
  Company Number: HQWYE230130MAR07

PATIENT
  Age: 91 Year
  Sex: Female

DRUGS (5)
  1. CORDARONE [Suspect]
     Indication: ATRIAL FIBRILLATION
     Dosage: DOSE UNSPECIFIED
     Route: 048
     Dates: start: 19950101
  2. SILYMARIN [Concomitant]
  3. TORSEMIDE [Concomitant]
  4. LORZAAR [Concomitant]
  5. ASS ^CT-ARZNEIMITTEL^ [Concomitant]

REACTIONS (3)
  - HEPATIC ENZYME INCREASED [None]
  - PNEUMONIA [None]
  - PULMONARY FIBROSIS [None]
